FAERS Safety Report 6066964-8 (Version None)
Quarter: 2009Q1

REPORT INFORMATION
  Report Type: 
  Country: None (occurrence: None)
  Receive Date: 20090205
  Receipt Date: 20081210
  Transmission Date: 20090719
  Serious: Yes (Hospitalization)
  Sender: FDA-Public Use
  Company Number: US-ABBOTT-08P-163-0492443-00

PATIENT
  Age: 45 Year
  Sex: Female
  Weight: 51.983 kg

DRUGS (9)
  1. ACETAMINOPHEN AND HYDROCODONE BITARTRATE [Suspect]
     Indication: PAIN
     Route: 048
     Dates: start: 20070802
  2. HYDROMORPHONE HYDROCHLORIDE [Suspect]
     Indication: PAIN
     Route: 048
     Dates: start: 20080714
  3. SCH 90015M (S-P) (HUMANIZED ANTI-HGF) [Suspect]
     Indication: NEOPLASM MALIGNANT
     Route: 042
     Dates: start: 20081008, end: 20081008
  4. NORGESIC [Suspect]
     Indication: PAIN
     Route: 062
     Dates: start: 20080229
  5. CELECOXIB [Concomitant]
     Indication: DRUG USE FOR UNKNOWN INDICATION
     Dates: start: 20080917
  6. LEVOFLOXACIN [Concomitant]
     Indication: DRUG USE FOR UNKNOWN INDICATION
     Route: 048
     Dates: start: 20080925
  7. DEXAMETHASONE [Concomitant]
     Indication: DRUG USE FOR UNKNOWN INDICATION
     Dates: start: 20081023
  8. DEXAMETHASONE [Concomitant]
  9. SCH 900105 [Concomitant]
     Indication: NEOPLASM MALIGNANT
     Dosage: 2MG/KG
     Route: 042
     Dates: start: 20081008

REACTIONS (1)
  - CONSTIPATION [None]
